FAERS Safety Report 10076941 (Version 1)
Quarter: 2014Q2

REPORT INFORMATION
  Report Type: Spontaneous
  Country: NL (occurrence: None)
  Receive Date: 20140410
  Receipt Date: 20140410
  Transmission Date: 20141212
  Serious: Yes (Other)
  Sender: FDA-Public Use
  Company Number: B0983014A

PATIENT
  Age: 45 Year
  Sex: Male

DRUGS (1)
  1. PAROXETINE HYDROCHLORIDE (FORMULATION UNKNOWN) (PAROXETINE HYDROCHLORIDE) [Suspect]
     Indication: PRODUCT USED FOR UNKNOWN INDICATION
     Dates: start: 20140114, end: 201403

REACTIONS (11)
  - Aggression [None]
  - Hyperhidrosis [None]
  - Erectile dysfunction [None]
  - Pruritus [None]
  - Fatigue [None]
  - Palpitations [None]
  - Weight decreased [None]
  - Somnolence [None]
  - Listless [None]
  - Homicidal ideation [None]
  - Anger [None]
